FAERS Safety Report 5845295-2 (Version None)
Quarter: 2008Q3

REPORT INFORMATION
  Report Type: 
  Country: None (occurrence: None)
  Receive Date: 20080731
  Receipt Date: 20080422
  Transmission Date: 20090109
  Serious: No
  Sender: FDA-Public Use
  Company Number: US200804005877

PATIENT
  Age: 54 Year
  Sex: Male

DRUGS (15)
  1. BYETTA [Suspect]
     Indication: INSULIN-REQUIRING TYPE 2 DIABETES MELLITUS
     Dosage: 5 UG, 2/D, SUBCUTANEOUS; 10 UG, 2/D, SUBCUTANEOUS
     Route: 058
     Dates: start: 20050701, end: 20050801
  2. BYETTA [Suspect]
     Indication: INSULIN-REQUIRING TYPE 2 DIABETES MELLITUS
     Dosage: 5 UG, 2/D, SUBCUTANEOUS; 10 UG, 2/D, SUBCUTANEOUS
     Route: 058
     Dates: start: 20050801
  3. NOVOLOG MIX 70/30 [Concomitant]
  4. FORTAMET (METFORMIN HYDROCHLORIDE) [Concomitant]
  5. AMARYL [Concomitant]
  6. DRUG USED IN DIABETES [Concomitant]
  7. DRUG USED IN DIABETES [Concomitant]
  8. NORVASC [Concomitant]
  9. AVAPRO [Concomitant]
  10. DEMADEX [Concomitant]
  11. TRICOR [Concomitant]
  12. TOPROL-XL [Concomitant]
  13. MULTIVITAMIN [Concomitant]
  14. ASPIRIN /USA/ (ACETYLSALICYLIC ACID) [Concomitant]
  15. MAGNESIUM OXIDE (MAGNESIUM OXIDE) [Concomitant]

REACTIONS (7)
  - ARTHRALGIA [None]
  - BLOOD GLUCOSE INCREASED [None]
  - INJECTION SITE HAEMATOMA [None]
  - INJECTION SITE IRRITATION [None]
  - MENISCUS LESION [None]
  - SYNOVIAL CYST [None]
  - WEIGHT DECREASED [None]
